FAERS Safety Report 22189659 (Version 1)
Quarter: 2023Q2

REPORT INFORMATION
  Report Type: Report from Study
  Country: GB (occurrence: GB)
  Receive Date: 20230410
  Receipt Date: 20230410
  Transmission Date: 20230722
  Serious: Yes (Other)
  Sender: FDA-Public Use
  Company Number: GB-CELLTRION INC.-2023GB006752

PATIENT

DRUGS (9)
  1. BEVACIZUMAB [Suspect]
     Active Substance: BEVACIZUMAB
     Indication: Hepatocellular carcinoma
     Dosage: 1700 MG
     Dates: start: 20210513
  2. ATEZOLIZUMAB [Suspect]
     Active Substance: ATEZOLIZUMAB
     Indication: Hepatocellular carcinoma
     Dosage: 1200 MG
     Route: 042
     Dates: start: 20210513
  3. ATEZOLIZUMAB [Concomitant]
     Active Substance: ATEZOLIZUMAB
  4. ENTECAVIR [Concomitant]
     Active Substance: ENTECAVIR
     Dosage: 1 EVERY 1 DAY
  5. FELODIPINE [Concomitant]
     Active Substance: FELODIPINE
     Dosage: 1 EVERY 1 DAY
     Dates: start: 20210726
  6. RAMIPRIL [Concomitant]
     Active Substance: RAMIPRIL
     Dosage: 1 EVERY 1 DAY
     Dates: start: 20210602, end: 20210727
  7. BETAMETHASONE VALERATE [Concomitant]
     Active Substance: BETAMETHASONE VALERATE
     Dosage: UNK
     Dates: start: 20220831
  8. FLEXITOL HEEL [Concomitant]
     Dosage: UNK
     Dates: start: 20220831
  9. ITACITINIB [Concomitant]
     Active Substance: ITACITINIB
     Dosage: UNK
     Dates: start: 20221109

REACTIONS (3)
  - Proteinuria [Not Recovered/Not Resolved]
  - Constipation [Not Recovered/Not Resolved]
  - Off label use [Unknown]

NARRATIVE: CASE EVENT DATE: 20210714
